FAERS Safety Report 17866447 (Version 5)
Quarter: 2020Q2

REPORT INFORMATION
  Report Type: Spontaneous
  Country: PL (occurrence: PL)
  Receive Date: 20200605
  Receipt Date: 20200623
  Transmission Date: 20200714
  Serious: Yes (Other)
  Sender: FDA-Public Use
  Company Number: PL-ABBVIE-20P-129-3432275-00

PATIENT
  Age: 62 Year
  Sex: Male

DRUGS (6)
  1. FLUTAMIDE. [Suspect]
     Active Substance: FLUTAMIDE
     Indication: HORMONE THERAPY
     Dosage: 250 MILLIGRAM, TID
     Route: 065
  2. ZOLEDRONIC ACID [Suspect]
     Active Substance: ZOLEDRONIC ACID
     Indication: OSTEOPOROSIS
  3. ZOLEDRONIC ACID [Suspect]
     Active Substance: ZOLEDRONIC ACID
     Indication: HORMONE-REFRACTORY PROSTATE CANCER
  4. DOCETAXEL. [Suspect]
     Active Substance: DOCETAXEL
     Indication: PROSTATE CANCER
     Dosage: 75 MILLIGRAM/SQ. METER, Q3WEEKS
     Route: 065
  5. ZOLEDRONIC ACID [Suspect]
     Active Substance: ZOLEDRONIC ACID
     Indication: PROSTATE CANCER
     Dosage: UNK
     Route: 065
  6. LEUPRORELIN [Suspect]
     Active Substance: LEUPROLIDE ACETATE
     Indication: PROSTATE CANCER
     Dosage: UNK
     Route: 065

REACTIONS (12)
  - Peripheral sensory neuropathy [Unknown]
  - Skin disorder [Unknown]
  - Prostatic specific antigen increased [Unknown]
  - Therapy partial responder [Unknown]
  - Spinal pain [Unknown]
  - Metastases to bone [Unknown]
  - Product use in unapproved indication [Unknown]
  - Asthenia [Unknown]
  - Hormone-refractory prostate cancer [Unknown]
  - Anaemia [Unknown]
  - Back pain [Unknown]
  - Neutropenia [Unknown]
